FAERS Safety Report 5404010-7 (Version None)
Quarter: 2007Q3

REPORT INFORMATION
  Report Type: 
  Country: None (occurrence: None)
  Receive Date: 20070802
  Receipt Date: 20070723
  Transmission Date: 20080115
  Serious: Yes (Death, Hospitalization)
  Sender: FDA-Public Use
  Company Number: B0481513A

PATIENT
  Age: 33 Year
  Sex: Female

DRUGS (4)
  1. ACETAMINOPHEN [Suspect]
     Route: 048
  2. RANITIDINE [Concomitant]
     Route: 065
  3. DIFENHIDRAMINE [Concomitant]
     Route: 065
  4. ROXITHROMYCIN [Concomitant]
     Route: 065

REACTIONS (26)
  - ABDOMINAL DISCOMFORT [None]
  - ACUTE HEPATIC FAILURE [None]
  - ALANINE AMINOTRANSFERASE INCREASED [None]
  - COAGULATION TIME PROLONGED [None]
  - CONFUSIONAL STATE [None]
  - DISORIENTATION [None]
  - ENCEPHALOPATHY [None]
  - HEPATIC NECROSIS [None]
  - HEPATIC STEATOSIS [None]
  - HEPATOCELLULAR DAMAGE [None]
  - JAUNDICE [None]
  - JAUNDICE CHOLESTATIC [None]
  - KIDNEY ENLARGEMENT [None]
  - METABOLIC ACIDOSIS [None]
  - MULTI-ORGAN FAILURE [None]
  - OCULAR ICTERUS [None]
  - PETECHIAE [None]
  - PLEURAL EFFUSION [None]
  - PULMONARY CONGESTION [None]
  - PULMONARY HAEMORRHAGE [None]
  - PULMONARY OEDEMA [None]
  - RENAL FAILURE ACUTE [None]
  - RENAL TUBULAR NECROSIS [None]
  - RESPIRATORY ALKALOSIS [None]
  - RESPIRATORY FAILURE [None]
  - SHOCK [None]
